FAERS Safety Report 21962054 (Version 1)
Quarter: 2023Q1

REPORT INFORMATION
  Report Type: Spontaneous
  Country: FR (occurrence: FR)
  Receive Date: 20230207
  Receipt Date: 20230207
  Transmission Date: 20230417
  Serious: Yes (Hospitalization)
  Sender: FDA-Public Use
  Company Number: None

PATIENT
  Age: 54 Year
  Sex: Male

DRUGS (11)
  1. CABERGOLINE [Suspect]
     Active Substance: CABERGOLINE
     Dosage: 0.5 MG, 1X/DAY
     Route: 048
  2. TROSPIUM CHLORIDE [Suspect]
     Active Substance: TROSPIUM CHLORIDE
     Dosage: 40 MG, 1X/DAY
     Route: 048
  3. CLOZAPINE [Suspect]
     Active Substance: CLOZAPINE
     Dosage: 25 MG, 1X/DAY
     Route: 048
  4. SOLIFENACIN [Suspect]
     Active Substance: SOLIFENACIN
     Dosage: 5 MG, 1X/DAY
     Route: 048
  5. DULOXETINE [Concomitant]
     Active Substance: DULOXETINE
  6. CYMBALTA [Concomitant]
     Active Substance: DULOXETINE HYDROCHLORIDE
  7. ATORVASTATIN [Concomitant]
     Active Substance: ATORVASTATIN
  8. BISOPROLOL [Concomitant]
     Active Substance: BISOPROLOL
  9. RAMIPRIL [Concomitant]
     Active Substance: RAMIPRIL
  10. ASPIRIN\CLOPIDOGREL [Concomitant]
     Active Substance: ASPIRIN\CLOPIDOGREL
  11. POLYETHYLENE GLYCOLS [Concomitant]
     Active Substance: POLYETHYLENE GLYCOLS

REACTIONS (1)
  - Faecaloma [Recovered/Resolved]

NARRATIVE: CASE EVENT DATE: 20230108
